FAERS Safety Report 5007788-X (Version None)
Quarter: 2006Q2

REPORT INFORMATION
  Report Type: 
  Country: None (occurrence: None)
  Receive Date: 20060522
  Receipt Date: 20060427
  Transmission Date: 20061013
  Serious: Yes (Other)
  Sender: FDA-Public Use
  Company Number: PT-GLAXOSMITHKLINE-B0423073A

PATIENT
  Age: 62 Year
  Sex: Female
  Weight: 45.5 kg

DRUGS (12)
  1. CEFORTAM [Suspect]
     Indication: INFECTION
     Dosage: 1G PER DAY
     Route: 042
     Dates: start: 20060420, end: 20060420
  2. INDOBUFEN [Concomitant]
     Dosage: 200MG PER DAY
     Route: 048
     Dates: start: 20011213
  3. FOLIC ACID [Concomitant]
     Dosage: 10MG PER DAY
     Route: 048
     Dates: start: 20011212
  4. VITAMIN B COMPLEX CAP [Concomitant]
     Dosage: 1TAB TWICE PER DAY
     Route: 048
     Dates: start: 20011213
  5. ENALAPRIL [Concomitant]
     Dosage: 20MG PER DAY
     Route: 048
     Dates: start: 20030519
  6. SEVELAMER [Concomitant]
     Dosage: 800MG EIGHT TIMES PER DAY
     Route: 048
     Dates: start: 20040213
  7. CINACALCET HYDROCHLORIDE [Concomitant]
     Dosage: 30MG PER DAY
     Route: 048
     Dates: start: 20041110
  8. DILTIAZEM [Concomitant]
     Dosage: 180MG PER DAY
     Route: 048
     Dates: start: 20050609
  9. PRAVASTATIN [Concomitant]
     Dosage: 20MG PER DAY
     Route: 048
     Dates: start: 20060126
  10. ACETYLSALICYLIC ACID SRT [Concomitant]
     Dosage: 150MG PER DAY
     Route: 048
     Dates: start: 20060126
  11. AMLODIPINE [Concomitant]
     Dosage: 5MG PER DAY
     Route: 048
     Dates: start: 20060126
  12. PARICALCITOL [Concomitant]
     Dosage: 5MG TWO TIMES PER WEEK

REACTIONS (6)
  - ANXIETY [None]
  - HYPERSENSITIVITY [None]
  - HYPOTENSION [None]
  - PHARMACEUTICAL PRODUCT COMPLAINT [None]
  - PRURITUS [None]
  - TREMOR [None]
